FAERS Safety Report 4400770-2 (Version None)
Quarter: 2004Q3

REPORT INFORMATION
  Report Type: 
  Country: None (occurrence: None)
  Receive Date: 20040907
  Receipt Date: 20030529
  Transmission Date: 20050211
  Serious: No
  Sender: FDA-Public Use
  Company Number: US-BRISTOL-MYERS SQUIBB COMPANY-12288742

PATIENT
  Age: 51 Year
  Sex: Female
  Weight: 91 kg

DRUGS (7)
  1. COUMADIN [Suspect]
     Indication: SUBCLAVIAN VEIN THROMBOSIS
     Route: 048
     Dates: start: 20031201
  2. THEO-DUR [Concomitant]
  3. ACIPHEX [Concomitant]
  4. MAXAIR [Concomitant]
  5. ALLEGRA [Concomitant]
  6. NEXIUM [Concomitant]
  7. PROGESTERONE [Concomitant]
     Route: 061

REACTIONS (3)
  - HEADACHE [None]
  - HOT FLUSH [None]
  - INTERNATIONAL NORMALISED RATIO ABNORMAL [None]
